FAERS Safety Report 5673695-2 (Version None)
Quarter: 2008Q2

REPORT INFORMATION
  Report Type: 
  Country: None (occurrence: None)
  Receive Date: 20080225
  Receipt Date: 20070308
  Transmission Date: 20081010
  Serious: Yes (Other)
  Sender: FDA-Public Use
  Company Number: WAES 0703USA01545

PATIENT

DRUGS (1)
  1. ZOCOR [Suspect]
     Dosage: PO
     Route: 048

REACTIONS (1)
  - RHABDOMYOLYSIS [None]
